FAERS Safety Report 10214774 (Version 1)
Quarter: 2014Q2

REPORT INFORMATION
  Report Type: Spontaneous
  Country: GB (occurrence: GB)
  Receive Date: 20140603
  Receipt Date: 20140603
  Transmission Date: 20141212
  Serious: Yes (Other)
  Sender: FDA-Public Use
  Company Number: GB-ROXANE LABORATORIES, INC.-2014-BI-24653GD

PATIENT
  Age: 18 Year
  Sex: Male

DRUGS (8)
  1. MORPHINE [Suspect]
     Indication: PAIN IN EXTREMITY
     Dosage: 25 MG
     Route: 048
  2. MORPHINE [Suspect]
     Indication: PROCEDURAL PAIN
     Dosage: 60 MG
     Route: 048
  3. MORPHINE [Suspect]
     Dosage: 50 MG
     Route: 048
  4. CODEINE [Suspect]
     Indication: PAIN IN EXTREMITY
     Dosage: 120 MG
     Route: 065
  5. CODEINE [Suspect]
     Dosage: 30 MG
     Route: 065
  6. TRAMADOL [Suspect]
     Indication: PROCEDURAL PAIN
     Dosage: 100 MG
     Route: 065
  7. TRAMADOL [Suspect]
     Route: 065
  8. MORPHINE [Suspect]
     Indication: PROCEDURAL PAIN
     Dosage: 3 MG
     Route: 042

REACTIONS (2)
  - Adrenal insufficiency [Recovered/Resolved]
  - Hypothalamic pituitary adrenal axis suppression [Recovered/Resolved]
